FAERS Safety Report 12247343 (Version 2)
Quarter: 2016Q2

REPORT INFORMATION
  Report Type: Spontaneous
  Country: US (occurrence: US)
  Receive Date: 20160407
  Receipt Date: 20160511
  Transmission Date: 20160815
  Serious: No
  Sender: FDA-Public Use
  Company Number: US-LUNDBECK-DKLU2011048

PATIENT
  Sex: Male

DRUGS (4)
  1. TOPAMAX [Concomitant]
     Active Substance: TOPIRAMATE
     Indication: PRODUCT USED FOR UNKNOWN INDICATION
     Route: 065
  2. SABRIL [Suspect]
     Active Substance: VIGABATRIN
     Indication: INFANTILE SPASMS
     Route: 065
     Dates: start: 20160204
  3. SABRIL [Suspect]
     Active Substance: VIGABATRIN
     Route: 065
  4. SABRIL [Suspect]
     Active Substance: VIGABATRIN
     Route: 065

REACTIONS (2)
  - Dysgeusia [Unknown]
  - Product preparation error [Unknown]
